FAERS Safety Report 19026198 (Version 3)
Quarter: 2021Q2

REPORT INFORMATION
  Report Type: Report from Study
  Country: US (occurrence: US)
  Receive Date: 20210318
  Receipt Date: 20210528
  Transmission Date: 20210717
  Serious: Yes (Other)
  Sender: FDA-Public Use
  Company Number: US-EMD SERONO-9197164

PATIENT
  Age: 47 Year
  Sex: Female
  Weight: 52 kg

DRUGS (3)
  1. MAVENCLAD [Suspect]
     Active Substance: CLADRIBINE
     Indication: MULTIPLE SCLEROSIS
     Dosage: YEAR ONE MONTH ONE THERAPY
     Route: 048
     Dates: start: 20200201
  2. MAVENCLAD [Suspect]
     Active Substance: CLADRIBINE
     Dosage: YEAR ONE MONTH TWO THERAPY
     Route: 048
     Dates: end: 20200304
  3. MAVENCLAD [Suspect]
     Active Substance: CLADRIBINE
     Dosage: YEAR TWO MONTH ONE THERAPY
     Route: 048
     Dates: start: 20210329, end: 20210402

REACTIONS (9)
  - COVID-19 [Unknown]
  - Gingival bleeding [Unknown]
  - Lymphocyte count decreased [Recovering/Resolving]
  - Platelet count decreased [Recovered/Resolved]
  - Blood immunoglobulin A decreased [Unknown]
  - Cerebrovascular accident [Unknown]
  - Blood immunoglobulin M decreased [Unknown]
  - Multiple sclerosis relapse [Recovering/Resolving]
  - Blood immunoglobulin G decreased [Not Recovered/Not Resolved]

NARRATIVE: CASE EVENT DATE: 2020
